FAERS Safety Report 15145118 (Version 1)
Quarter: 2018Q3

REPORT INFORMATION
  Report Type: Spontaneous
  Country: US (occurrence: US)
  Receive Date: 20180713
  Receipt Date: 20180713
  Transmission Date: 20181010
  Serious: No
  Sender: FDA-Public Use
  Company Number: US-INTERCEPT-PMOCA2018000346

PATIENT

DRUGS (2)
  1. URSO [Concomitant]
     Active Substance: URSODIOL
     Dosage: 1000 MG, UNK
     Dates: start: 2013
  2. OCALIVA [Suspect]
     Active Substance: OBETICHOLIC ACID
     Indication: PRIMARY BILIARY CHOLANGITIS
     Dosage: UNK
     Dates: start: 201709

REACTIONS (5)
  - Dry mouth [Unknown]
  - Fatigue [Unknown]
  - Dry eye [Unknown]
  - Pruritus [Unknown]
  - Feeling abnormal [Unknown]
